FAERS Safety Report 20944733 (Version 1)
Quarter: 2022Q2

REPORT INFORMATION
  Report Type: Spontaneous
  Country: US (occurrence: US)
  Receive Date: 20220610
  Receipt Date: 20220610
  Transmission Date: 20220721
  Serious: Yes (Death, Other)
  Sender: FDA-Public Use
  Company Number: US-ORGANON-O2206USA000556

PATIENT
  Age: 68 Year
  Sex: Female

DRUGS (2)
  1. ZOCOR [Suspect]
     Active Substance: SIMVASTATIN
     Dosage: MODERATE-DOSE STATIN THERAPY
     Route: 048
  2. ATORVASTATIN [Suspect]
     Active Substance: ATORVASTATIN
     Indication: Prophylaxis
     Dosage: LONG-STANDING HIGH INTENSITY STATIN THERAPY

REACTIONS (2)
  - Rhabdomyolysis [Fatal]
  - Drug ineffective [Unknown]
